FAERS Safety Report 26209333 (Version 1)
Quarter: 2025Q4

REPORT INFORMATION
  Report Type: Spontaneous
  Country: JP (occurrence: JP)
  Receive Date: 20251229
  Receipt Date: 20251229
  Transmission Date: 20260117
  Serious: Yes (Death, Other)
  Sender: PFIZER
  Company Number: JP-PFIZER INC-PV202500142945

PATIENT
  Age: 64 Year
  Sex: Female

DRUGS (15)
  1. IBRANCE [Suspect]
     Active Substance: PALBOCICLIB
     Indication: Breast cancer metastatic
     Dosage: 4 DF (25 MG X4 TABLETS)
     Route: 048
     Dates: start: 20241204, end: 20251030
  2. FEMARA [Suspect]
     Active Substance: LETROZOLE
     Indication: Breast cancer metastatic
     Dosage: 2.5 MG
     Route: 048
     Dates: start: 20241121, end: 20251030
  3. DENOSUMAB [Concomitant]
     Active Substance: DENOSUMAB
     Indication: Metastases to bone
     Dosage: EVERY 3 MONTHS
  4. CALCIUM CARBONATE\CHOLECALCIFEROL\MAGNESIUM CARBONATE [Concomitant]
     Active Substance: CALCIUM CARBONATE\CHOLECALCIFEROL\MAGNESIUM CARBONATE
     Indication: Prophylaxis
     Dosage: 2 DF
  5. BROMHEXINE [BROMHEXINE HYDROCHLORIDE] [Concomitant]
     Indication: Productive cough
     Dosage: 4 MG, 3X/DAY
  6. LOXOPROFEN SODIUM DIHYDRATE [Concomitant]
     Active Substance: LOXOPROFEN SODIUM DIHYDRATE
     Indication: Headache
     Dosage: 60 MG, 1X/DAY AS NEEDED
  7. LOXOPROFEN SODIUM DIHYDRATE [Concomitant]
     Active Substance: LOXOPROFEN SODIUM DIHYDRATE
     Indication: Analgesic therapy
  8. SYMBICORT [Concomitant]
     Active Substance: BUDESONIDE\FORMOTEROL FUMARATE DIHYDRATE
     Indication: Asthma
     Dosage: 60 UNKNOWN UNIT, 2X/DAY
  9. EPRAZINONE [Concomitant]
     Active Substance: EPRAZINONE
     Indication: Antitussive therapy
     Dosage: 30 MG, 3X/DAY
  10. THEOPHYLLINE [Concomitant]
     Active Substance: THEOPHYLLINE
     Indication: Asthma
     Dosage: 200 MG
  11. FAMOTIDINE [Concomitant]
     Active Substance: FAMOTIDINE
     Indication: Gastritis
     Dosage: 10 MG, 2X/DAY
  12. GLIMEPIRIDE [Concomitant]
     Active Substance: GLIMEPIRIDE
     Indication: Diabetes mellitus
     Dosage: 0.5 MG, 1X/DAY
  13. FEXOFENADINE [FEXOFENADINE HYDROCHLORIDE] [Concomitant]
     Dosage: 60 MG, 2X/DAY
  14. ROSUVASTATIN CALCIUM [Concomitant]
     Active Substance: ROSUVASTATIN CALCIUM
     Indication: Hypercholesterolaemia
     Dosage: 2.5 MG, 1X/DAY
  15. SITAFLOXACIN [Concomitant]
     Active Substance: SITAFLOXACIN
     Indication: Infection
     Dosage: 50 MG, 2X/DAY

REACTIONS (6)
  - Interstitial lung disease [Fatal]
  - Ischaemic cerebral infarction [Unknown]
  - Pneumomediastinum [Unknown]
  - Respiratory failure [Unknown]
  - Urine abnormality [Unknown]
  - Dyslalia [Unknown]

NARRATIVE: CASE EVENT DATE: 20251031
